FAERS Safety Report 7605834-8 (Version None)
Quarter: 2011Q3

REPORT INFORMATION
  Report Type: 
  Country: None (occurrence: None)
  Receive Date: 20110705
  Receipt Date: 20110620
  Transmission Date: 20111222
  Serious: Yes (Disabling)
  Sender: FDA-Public Use
  Company Number: 2011-1620

PATIENT
  Age: 52 Year
  Sex: Female
  Weight: 50 kg

DRUGS (6)
  1. CLONAZEPAM [Concomitant]
  2. SOMATULINE DEPOT [Suspect]
     Indication: ACROMEGALY
     Dosage: 90 MG (90 MG, 1 IN 28 D) SUBCUTANEOUS
     Route: 058
     Dates: start: 20110419
  3. SINGULAIR [Concomitant]
  4. NEXIUM [Concomitant]
  5. FLUOXETINE HYDROCHLORIDE [Concomitant]
  6. CARISOPRODOL [Concomitant]

REACTIONS (6)
  - FLATULENCE [None]
  - NAUSEA [None]
  - VOMITING [None]
  - FAECES DISCOLOURED [None]
  - DIARRHOEA [None]
  - DEPRESSION [None]
